FAERS Safety Report 26050760 (Version 1)
Quarter: 2025Q4

REPORT INFORMATION
  Report Type: Report from Study
  Country: KR (occurrence: KR)
  Receive Date: 20251116
  Receipt Date: 20251116
  Transmission Date: 20260118
  Serious: Yes (Hospitalization, Other)
  Sender: JOHNSON AND JOHNSON
  Company Number: KR-JNJFOC-20251160022

PATIENT
  Age: 83 Year
  Sex: Female
  Weight: 66.0 kg

DRUGS (3)
  1. LAZERTINIB [Suspect]
     Active Substance: LAZERTINIB
     Indication: Non-small cell lung cancer
     Route: 048
     Dates: start: 20250220, end: 20250626
  2. LAZERTINIB [Suspect]
     Active Substance: LAZERTINIB
     Route: 048
     Dates: start: 20250627, end: 202507
  3. ACETAMINOPHEN\TRAMADOL [Concomitant]
     Active Substance: ACETAMINOPHEN\TRAMADOL
     Indication: Pain management
     Dosage: 3 TABLETS
     Route: 048
     Dates: start: 20241219

REACTIONS (5)
  - Femur fracture [Recovering/Resolving]
  - Rib fracture [Recovering/Resolving]
  - Paraesthesia [Unknown]
  - Constipation [Unknown]
  - Peripheral sensory neuropathy [Unknown]

NARRATIVE: CASE EVENT DATE: 20250430
